FAERS Safety Report 17434877 (Version 2)
Quarter: 2020Q1

REPORT INFORMATION
  Report Type: Spontaneous
  Country: FR (occurrence: FR)
  Receive Date: 20200219
  Receipt Date: 20200316
  Transmission Date: 20200409
  Serious: Yes (Other)
  Sender: FDA-Public Use
  Company Number: FR-PFIZER INC-2020073038

PATIENT
  Age: 75 Year
  Sex: Male

DRUGS (2)
  1. VYNDAQEL [Suspect]
     Active Substance: TAFAMIDIS MEGLUMINE
     Dosage: 80 MG, DAILY
  2. VYNDAQEL [Suspect]
     Active Substance: TAFAMIDIS MEGLUMINE
     Indication: CARDIAC FAILURE CHRONIC
     Dosage: 20 MG, DAILY

REACTIONS (4)
  - Cardiac failure chronic [Unknown]
  - Disease progression [Unknown]
  - Off label use [Unknown]
  - Product use in unapproved indication [Unknown]
